FAERS Safety Report 7829765-3 (Version None)
Quarter: 2011Q4

REPORT INFORMATION
  Report Type: 
  Country: None (occurrence: None)
  Receive Date: 20111018
  Receipt Date: 20111007
  Transmission Date: 20120403
  Serious: Yes (Other)
  Sender: FDA-Public Use
  Company Number: ACO_26835_2011

PATIENT
  Age: 47 Year
  Sex: Male
  Weight: 85.7 kg

DRUGS (4)
  1. COPAXONE [Concomitant]
  2. AMPYRA [Suspect]
     Indication: GAIT DISTURBANCE
     Dosage: 10 MG, BID, ORAL
     Route: 048
     Dates: start: 20110601, end: 20110101
  3. BACLOFEN [Concomitant]
  4. VITAMIN D2 (ERGOCALCIFEROL) [Concomitant]

REACTIONS (6)
  - VERTIGO [None]
  - THROMBOSIS [None]
  - MUSCLE ATROPHY [None]
  - DRY MOUTH [None]
  - MUSCLE SWELLING [None]
  - DIZZINESS [None]
